FAERS Safety Report 10530088 (Version 2)
Quarter: 2015Q1

REPORT INFORMATION
  Report Type: Spontaneous
  Country: FR (occurrence: None)
  Receive Date: 20141017
  Receipt Date: 20150121
  Transmission Date: 20150720
  Serious: Yes (Hospitalization)
  Sender: FDA-Public Use
  Company Number: FR2014GSK000127

PATIENT
  Sex: Male
  Weight: 4.1 kg

DRUGS (6)
  1. LEXOMIL [Suspect]
     Active Substance: BROMAZEPAM
     Indication: PRODUCT USED FOR UNKNOWN INDICATION
     Route: 064
     Dates: start: 201201, end: 20120904
  2. DEROXAT [Suspect]
     Active Substance: PAROXETINE HYDROCHLORIDE
     Indication: PRODUCT USED FOR UNKNOWN INDICATION
     Route: 064
     Dates: start: 201201, end: 20120904
  3. INSULIN (INSULIN NOS) [Concomitant]
  4. ADALATE(NIFEDIPINE) [Concomitant]
  5. SIMVASTATIN(SIMVASTATIN) [Concomitant]
     Active Substance: SIMVASTATIN
  6. CORTICOID(CORTICOSTEROID) [Concomitant]

REACTIONS (11)
  - Jaundice neonatal [None]
  - Tachypnoea [None]
  - Premature baby [None]
  - Hypocalcaemia [None]
  - Staphylococcal sepsis [None]
  - Maternal drugs affecting foetus [None]
  - Sepsis [None]
  - Caesarean section [None]
  - Neonatal respiratory distress syndrome [None]
  - Foetal cardiac disorder [None]
  - Macrosomia [None]

NARRATIVE: CASE EVENT DATE: 20120904
